FAERS Safety Report 18654482 (Version 1)
Quarter: 2020Q4

REPORT INFORMATION
  Report Type: Spontaneous
  Country: US (occurrence: US)
  Receive Date: 20201223
  Receipt Date: 20201223
  Transmission Date: 20210114
  Serious: No
  Sender: FDA-Public Use
  Company Number: US-009507513-2012USA002695

PATIENT
  Age: 60 Year
  Sex: Male

DRUGS (25)
  1. LIPITOR [Concomitant]
     Active Substance: ATORVASTATIN CALCIUM
  2. PROCHLORPERAZINE. [Concomitant]
     Active Substance: PROCHLORPERAZINE
  3. FLOMAX [Concomitant]
     Active Substance: TAMSULOSIN HYDROCHLORIDE
  4. ATROVENT [Concomitant]
     Active Substance: IPRATROPIUM BROMIDE
  5. METFORMIN [Concomitant]
     Active Substance: METFORMIN HYDROCHLORIDE
  6. ZOFRAN [Concomitant]
     Active Substance: ONDANSETRON HYDROCHLORIDE
  7. PACLITAXEL. [Concomitant]
     Active Substance: PACLITAXEL
     Dosage: FOR 4 CYCLES
  8. ALBUTEROL. [Concomitant]
     Active Substance: ALBUTEROL
  9. LIRAGLUTIDE [Concomitant]
     Active Substance: LIRAGLUTIDE
  10. PROAIR (PROCATEROL HYDROCHLORIDE) [Concomitant]
     Active Substance: PROCATEROL HYDROCHLORIDE
  11. KEYTRUDA [Suspect]
     Active Substance: PEMBROLIZUMAB
     Dosage: 400 MILLIGRAM, EVERY 6 WEEKS
     Route: 042
     Dates: start: 20201026, end: 20201026
  12. KEYTRUDA [Suspect]
     Active Substance: PEMBROLIZUMAB
     Dosage: 400 MILLIGRAM, EVERY 6 WEEKS
     Route: 042
     Dates: start: 20201116
  13. HYDROXYZINE [Concomitant]
     Active Substance: HYDROXYZINE HYDROCHLORIDE
  14. LORATADINE. [Concomitant]
     Active Substance: LORATADINE
  15. MAG OXIDE [Concomitant]
     Active Substance: MAGNESIUM OXIDE
  16. OMEPRAZOLE. [Concomitant]
     Active Substance: OMEPRAZOLE
  17. SPIRIVA [Concomitant]
     Active Substance: TIOTROPIUM BROMIDE MONOHYDRATE
  18. CARBOPLATIN. [Concomitant]
     Active Substance: CARBOPLATIN
     Dosage: FOR 4 CYCLES
  19. TYLENOL [Concomitant]
     Active Substance: ACETAMINOPHEN
  20. ASPIRIN. [Concomitant]
     Active Substance: ASPIRIN
  21. OXYCODONE [Concomitant]
     Active Substance: OXYCODONE
  22. KEYTRUDA [Suspect]
     Active Substance: PEMBROLIZUMAB
     Indication: SQUAMOUS CELL CARCINOMA OF LUNG
     Dosage: 400 MILLIGRAM, EVERY 6 WEEKS
     Dates: start: 20200820, end: 2020
  23. DULERA [Concomitant]
     Active Substance: FORMOTEROL FUMARATE DIHYDRATE\MOMETASONE FUROATE
  24. INSULIN GLARGINE [Concomitant]
     Active Substance: INSULIN GLARGINE
  25. SERTRALINE HYDROCHLORIDE. [Concomitant]
     Active Substance: SERTRALINE HYDROCHLORIDE

REACTIONS (9)
  - Feeling abnormal [Unknown]
  - Dizziness [Unknown]
  - Asthenia [Unknown]
  - Fall [Unknown]
  - Dyspnoea [Unknown]
  - Vocal cord paralysis [Unknown]
  - Hypercalcaemia [Unknown]
  - Inappropriate schedule of product administration [Unknown]
  - Fatigue [Unknown]

NARRATIVE: CASE EVENT DATE: 2020
